FAERS Safety Report 8470039 (Version 4)
Quarter: 2014Q1

REPORT INFORMATION
  Report Type: Report from Study
  Country: US (occurrence: US)
  Receive Date: 20120321
  Receipt Date: 20140325
  Transmission Date: 20141002
  Serious: Yes (Hospitalization, Other)
  Sender: FDA-Public Use
  Company Number: US-ALEXION PHARMACEUTICALS INC.-A201200491

PATIENT
  Age: 64 Year
  Sex: Male

DRUGS (10)
  1. SOLIRIS [Suspect]
     Indication: PAROXYSMAL NOCTURNAL HAEMOGLOBINURIA
     Dosage: 600 MG, UNK
     Route: 042
  2. SOLIRIS [Suspect]
     Dosage: 1500 MG,Q12
     Route: 042
     Dates: start: 20120405
  3. METHOTREXATE [Concomitant]
     Indication: RHEUMATOID ARTHRITIS
     Dosage: UNK
     Route: 048
  4. ANDROGEL [Concomitant]
     Indication: BLOOD TESTOSTERONE DECREASED
     Dosage: 40.5 MG, QD
     Route: 062
  5. PREDNISONE BIOGARAN [Concomitant]
     Indication: RHEUMATOID ARTHRITIS
     Dosage: UNK
  6. FOLIC ACID [Concomitant]
     Indication: PAROXYSMAL NOCTURNAL HAEMOGLOBINURIA
     Dosage: 800 MCG, QD
     Route: 048
  7. COUMADIN [Concomitant]
     Dosage: 5 MG, QD
     Route: 048
  8. AMBIEN [Concomitant]
     Dosage: UNK
  9. HYDROCODONE [Concomitant]
     Indication: PAIN
     Dosage: 4 MG, Q 3 HRS, PRN
     Route: 048
  10. HYDROXYCHLOROQUINE [Concomitant]
     Indication: RHEUMATOID ARTHRITIS
     Dosage: 200 MG, BID
     Route: 048

REACTIONS (11)
  - Cholecystitis [Recovered/Resolved]
  - Cholecystectomy [Recovered/Resolved]
  - Haemoglobin decreased [Recovered/Resolved]
  - Packed red blood cell transfusion [Unknown]
  - Alpha-1 anti-trypsin deficiency [Not Recovered/Not Resolved]
  - Rectal polyp [Recovered/Resolved]
  - Diverticulum [Not Recovered/Not Resolved]
  - Colitis microscopic [Not Recovered/Not Resolved]
  - Nausea [Unknown]
  - Vomiting [Unknown]
  - Weight decreased [Unknown]
